FAERS Safety Report 5291910-4 (Version None)
Quarter: 2007Q2

REPORT INFORMATION
  Report Type: 
  Country: None (occurrence: None)
  Receive Date: 20070410
  Receipt Date: 20070402
  Transmission Date: 20071010
  Serious: Yes (Death)
  Sender: FDA-Public Use
  Company Number: FR-BAYER-200610827BFR

PATIENT
  Age: 78 Year
  Sex: Male

DRUGS (6)
  1. PLACEBO TO SORAFENIB [Suspect]
     Indication: HEPATIC NEOPLASM MALIGNANT
     Dosage: TOTAL DAILY DOSE: 800 MG  UNIT DOSE: 200 MG
     Route: 048
     Dates: end: 20060828
  2. CORGARD [Concomitant]
     Indication: HAEMORRHAGE PROPHYLAXIS
     Route: 048
     Dates: start: 20060119, end: 20060828
  3. URSOLVAN [Concomitant]
     Indication: CALCULUS BLADDER
     Route: 048
     Dates: end: 20060828
  4. LASIX [Concomitant]
     Indication: OEDEMA
     Route: 048
     Dates: start: 20060327, end: 20060828
  5. ALDACTONE [Concomitant]
     Indication: OEDEMA
     Route: 048
     Dates: start: 20060509, end: 20060828
  6. ACETAMINOPHEN AND TRAMADOL HCL [Concomitant]
     Indication: PAIN
     Route: 048
     Dates: start: 20060509, end: 20060828

REACTIONS (2)
  - HAEMORRHAGIC TUMOUR NECROSIS [None]
  - PERITONEAL HAEMORRHAGE [None]
